FAERS Safety Report 25252728 (Version 7)
Quarter: 2025Q4

REPORT INFORMATION
  Report Type: Spontaneous
  Country: US (occurrence: US)
  Receive Date: 20250429
  Receipt Date: 20251229
  Transmission Date: 20260117
  Serious: No
  Sender: TRAVERE THERAPEUTICS
  Company Number: US-TRAVERE-2025TVT00474

PATIENT
  Age: 50 Year
  Sex: Female

DRUGS (4)
  1. FILSPARI [Suspect]
     Active Substance: SPARSENTAN
     Indication: IgA nephropathy
     Route: 048
  2. FILSPARI [Suspect]
     Active Substance: SPARSENTAN
     Dosage: 30-AUG-2026
     Route: 048
     Dates: start: 202504
  3. FILSPARI [Suspect]
     Active Substance: SPARSENTAN
     Route: 048
     Dates: start: 202506
  4. ZEPBOUND [Suspect]
     Active Substance: TIRZEPATIDE
     Indication: Product used for unknown indication
     Route: 065

REACTIONS (10)
  - Musculoskeletal chest pain [None]
  - Blood calcium increased [Unknown]
  - Aspartate aminotransferase increased [None]
  - Alanine aminotransferase increased [None]
  - Uterine prolapse [Unknown]
  - Cystocele [Unknown]
  - Constipation [Unknown]
  - Weight decreased [Unknown]
  - Decreased appetite [Unknown]
  - Blood iron decreased [Unknown]
